FAERS Safety Report 16042221 (Version 1)
Quarter: 2019Q1

REPORT INFORMATION
  Report Type: Spontaneous
  Country: US (occurrence: US)
  Receive Date: 20190306
  Receipt Date: 20190306
  Transmission Date: 20190418
  Serious: No
  Sender: FDA-Public Use
  Company Number: US-AKORN PHARMACEUTICALS-2018AKN00424

PATIENT
  Age: 14 Year
  Sex: Female

DRUGS (8)
  1. EPIDUO TOPICALWITH PUMP [Concomitant]
  2. MYORISAN [Suspect]
     Active Substance: ISOTRETINOIN
     Indication: ACNE
     Dosage: UNK
     Dates: start: 20180227
  3. CLINDAMYCIN PHOSPHATE TOPICAL [Concomitant]
  4. DORYX [Concomitant]
     Active Substance: DOXYCYCLINE HYCLATE
  5. ZIANA TOPICAL [Concomitant]
  6. SINGULAIR [Concomitant]
     Active Substance: MONTELUKAST SODIUM
     Route: 048
  7. EPIDUO TOPICAL [Concomitant]
  8. DOXYCYCLINE HYCLATE. [Concomitant]
     Active Substance: DOXYCYCLINE HYCLATE

REACTIONS (2)
  - Off label use [Not Recovered/Not Resolved]
  - Xerosis [Not Recovered/Not Resolved]

NARRATIVE: CASE EVENT DATE: 2018
